FAERS Safety Report 10092197 (Version 2)
Quarter: 2014Q2

REPORT INFORMATION
  Report Type: Spontaneous
  Country: US (occurrence: US)
  Receive Date: 20140421
  Receipt Date: 20140421
  Transmission Date: 20141212
  Serious: No
  Sender: FDA-Public Use
  Company Number: US-SANOFI-AVENTIS-2013SA021823

PATIENT
  Age: 73 Year
  Sex: Female
  Weight: 64.41 kg

DRUGS (2)
  1. ALLEGRA [Suspect]
     Indication: UPPER-AIRWAY COUGH SYNDROME
     Route: 048
  2. ALLEGRA [Suspect]
     Indication: RHINORRHOEA
     Route: 048

REACTIONS (2)
  - Abdominal pain upper [Recovered/Resolved]
  - Condition aggravated [Recovered/Resolved]
